FAERS Safety Report 10461199 (Version 1)
Quarter: 2014Q3

REPORT INFORMATION
  Report Type: Spontaneous
  Country: IT (occurrence: None)
  Receive Date: 20140916
  Receipt Date: 20140916
  Transmission Date: 20150326
  Serious: Yes (Hospitalization)
  Sender: FDA-Public Use
  Company Number: IMP_07910_2014

PATIENT
  Age: 78 Year
  Sex: Female

DRUGS (7)
  1. RAMIPRIL (UNKNOWN) [Concomitant]
     Active Substance: RAMIPRIL
  2. CARVEDILOL (UNKNOWN) [Concomitant]
     Active Substance: CARVEDILOL
  3. METFORMIN HYDROCHLORIDE. [Suspect]
     Active Substance: METFORMIN HYDROCHLORIDE
     Indication: TYPE 2 DIABETES MELLITUS
     Dosage: (1200 MG DAILY ORAL)
     Route: 048
  4. WARFARIN (UNKNOWN) [Concomitant]
     Active Substance: WARFARIN
  5. GLIBENCLAMIDE [Suspect]
     Active Substance: GLYBURIDE
     Indication: TYPE 2 DIABETES MELLITUS
     Dosage: (7.5 MG, DAILY ORAL)?
     Route: 048
  6. FUROSEMIDE (UNKNOWN) [Concomitant]
     Active Substance: FUROSEMIDE
  7. ATORVASTATIN (UNKNOWN) [Concomitant]
     Active Substance: ATORVASTATIN

REACTIONS (8)
  - Pulmonary toxicity [None]
  - Vasculitis [None]
  - Glycosylated haemoglobin increased [None]
  - Sarcoidosis [None]
  - Atrial fibrillation [None]
  - Interstitial lung disease [None]
  - Dyspnoea [None]
  - Blood glucose increased [None]
